FAERS Safety Report 4359797-1 (Version None)
Quarter: 2004Q2

REPORT INFORMATION
  Report Type: 
  Country: None (occurrence: None)
  Receive Date: 20040518
  Receipt Date: 20040506
  Transmission Date: 20050107
  Serious: Yes (Death)
  Sender: FDA-Public Use
  Company Number: PHFR2004GB00834

PATIENT
  Age: 41 Year
  Sex: Male

DRUGS (5)
  1. PROCYCLIDINE HYDROCHLORIDE 2MG TAB [Suspect]
     Dosage: 5MG FOUR TIMES PER DAY
     Route: 065
  2. CLOZARIL [Suspect]
     Indication: SCHIZOPHRENIA
     Dosage: 200MG PER DAY
     Route: 048
     Dates: start: 20040112
  3. CHLORPROMAZINE [Suspect]
     Dosage: 300MG THREE TIMES PER DAY
     Route: 065
  4. ZOPICLONE [Suspect]
     Dosage: 7.5MG AT NIGHT
     Route: 065
  5. CLONAZEPAM [Suspect]
     Dosage: .5MG PER DAY
     Route: 065

REACTIONS (10)
  - ARTERITIS [None]
  - CARDIO-RESPIRATORY ARREST [None]
  - DEHYDRATION [None]
  - DIARRHOEA [None]
  - DRUG INTERACTION [None]
  - DRUG LEVEL INCREASED [None]
  - MYOCARDITIS [None]
  - ORTHOSTATIC HYPOTENSION [None]
  - PERICARDITIS [None]
  - RENAL IMPAIRMENT [None]
